FAERS Safety Report 4301282-7 (Version None)
Quarter: 2004Q1

REPORT INFORMATION
  Report Type: 
  Country: None (occurrence: None)
  Receive Date: 20040220
  Receipt Date: 20040220
  Transmission Date: 20041129
  Serious: Yes (Other)
  Sender: FDA-Public Use
  Company Number: None

PATIENT
  Age: 52 Year
  Sex: Female
  Weight: 72.5755 kg

DRUGS (4)
  1. LESCOL [Suspect]
     Indication: BLOOD CHOLESTEROL INCREASED
     Dosage: 20 MG DAILY
  2. METROCREAM [Suspect]
     Indication: ROSACEA
     Dosage: 75% DAILY
  3. TETRACYCLINE [Suspect]
     Indication: ROSACEA
     Dosage: 500 MG 2 DAILY
  4. LIPITOR [Suspect]

REACTIONS (6)
  - ARTHRALGIA [None]
  - HYPOAESTHESIA [None]
  - NEUROPATHY [None]
  - PAIN [None]
  - PAIN IN EXTREMITY [None]
  - PARAESTHESIA [None]
